FAERS Safety Report 5391815-4 (Version None)
Quarter: 2007Q3

REPORT INFORMATION
  Report Type: 
  Country: None (occurrence: None)
  Receive Date: 20070718
  Receipt Date: 20070706
  Transmission Date: 20080115
  Serious: Yes (Hospitalization)
  Sender: FDA-Public Use
  Company Number: TPA2007A00973

PATIENT
  Age: 74 Year
  Sex: Male
  Weight: 106.1417 kg

DRUGS (15)
  1. PIOGLITAZONE HCL [Suspect]
     Indication: CEREBROVASCULAR ACCIDENT
     Dosage: 1 IN 1 D, PER ORAL
     Route: 048
     Dates: start: 20060411
  2. PIOGLITAZONE HCL [Suspect]
     Indication: DISEASE RECURRENCE
     Dosage: 1 IN 1 D, PER ORAL
     Route: 048
     Dates: start: 20060411
  3. PIOGLITAZONE HCL [Suspect]
     Indication: MYOCARDIAL INFARCTION
     Dosage: 1 IN 1 D, PER ORAL
     Route: 048
     Dates: start: 20060411
  4. PIOGLITAZONE HCL [Suspect]
     Indication: PROPHYLAXIS
     Dosage: 1 IN 1 D, PER ORAL
     Route: 048
     Dates: start: 20060411
  5. LISINOPRIL [Concomitant]
  6. DESYREL [Concomitant]
  7. PRILOSEC [Concomitant]
  8. THIAMINE (THIAMINE) [Concomitant]
  9. FOLIC ACID [Concomitant]
  10. PROSCAR [Concomitant]
  11. ALLEGRA [Concomitant]
  12. TYLENOL (PARACETAMOL0 [Concomitant]
  13. FLOMAX [Concomitant]
  14. RESTORIL [Concomitant]
  15. ZOFRAN [Concomitant]

REACTIONS (2)
  - FALL [None]
  - FEMORAL NECK FRACTURE [None]
